FAERS Safety Report 4641044-4 (Version None)
Quarter: 2005Q2

REPORT INFORMATION
  Report Type: 
  Country: None (occurrence: None)
  Receive Date: 20050419
  Receipt Date: 20050419
  Transmission Date: 20051028
  Serious: No
  Sender: FDA-Public Use
  Company Number: None

PATIENT
  Age: 80 Year
  Sex: Male
  Weight: 103.6 kg

DRUGS (8)
  1. WARFARIN [Suspect]
     Indication: ARTERIOVENOUS MALFORMATION
     Dosage: VARIOUS, VARIOUS, ORAL
     Route: 048
  2. GLIPIZIDE [Concomitant]
  3. SIMVASTATIN [Concomitant]
  4. FUROSEMIDE [Concomitant]
  5. TERAZOSIN HCL [Concomitant]
  6. TRAZODONE HCL [Concomitant]
  7. SYNTHROID [Concomitant]
  8. SPIRONOLACTONE [Concomitant]

REACTIONS (1)
  - INTERNATIONAL NORMALISED RATIO INCREASED [None]
